FAERS Safety Report 7404041-1 (Version None)
Quarter: 2011Q2

REPORT INFORMATION
  Report Type: 
  Country: None (occurrence: None)
  Receive Date: 20110408
  Receipt Date: 20110314
  Transmission Date: 20111010
  Serious: Yes (Hospitalization, Other)
  Sender: FDA-Public Use
  Company Number: US-BAYER-201031601NA

PATIENT
  Age: 29 Year
  Sex: Female
  Weight: 154 kg

DRUGS (5)
  1. ASCORBIC ACID [Concomitant]
     Dosage: UNK
     Dates: start: 20090101
  2. VICODIN [Concomitant]
     Dosage: UNK
     Dates: start: 20090707
  3. YAZ [Suspect]
     Indication: CONTRACEPTION
     Dosage: UNK
     Route: 048
     Dates: start: 20090324, end: 20091201
  4. NSAID'S [Concomitant]
     Dosage: UNK UNK, PRN
  5. PRILOSEC [Concomitant]
     Indication: GASTROOESOPHAGEAL REFLUX DISEASE
     Dosage: UNK
     Dates: start: 20080101, end: 20090101

REACTIONS (3)
  - CHOLECYSTITIS [None]
  - GALLBLADDER DISORDER [None]
  - PAIN [None]
